FAERS Safety Report 20778301 (Version 1)
Quarter: 2022Q2

REPORT INFORMATION
  Report Type: Spontaneous
  Country: US (occurrence: US)
  Receive Date: 20220503
  Receipt Date: 20220503
  Transmission Date: 20220721
  Serious: No
  Sender: FDA-Public Use
  Company Number: US-PFIZER INC-202101153947

PATIENT

DRUGS (1)
  1. PFIZERPEN [Suspect]
     Active Substance: PENICILLIN G POTASSIUM
     Dosage: UNK
     Route: 042

REACTIONS (2)
  - Device use confusion [Unknown]
  - Product packaging quantity issue [Unknown]
